FAERS Safety Report 10486238 (Version 1)
Quarter: 2014Q3

REPORT INFORMATION
  Report Type: Spontaneous
  Country: CH (occurrence: None)
  Receive Date: 20140929
  Receipt Date: 20140929
  Transmission Date: 20150326
  Serious: Yes (Death)
  Sender: FDA-Public Use
  Company Number: FK201403785

PATIENT
  Age: 68 Year
  Sex: Female

DRUGS (1)
  1. SUMATRIPTAN (MANUFACTURER UNKNOWN) (SUMATRIPTAN SUCCINATE) (SUMATRIPTAN SUCCINATE) [Suspect]
     Active Substance: SUMATRIPTAN

REACTIONS (3)
  - Hemiparesis [None]
  - Brain oedema [None]
  - Cerebral vasoconstriction [None]
